FAERS Safety Report 8465032-5 (Version None)
Quarter: 2012Q2

REPORT INFORMATION
  Report Type: 
  Country: None (occurrence: None)
  Receive Date: 20120618
  Receipt Date: 20120605
  Transmission Date: 20120825
  Serious: Yes (Hospitalization, Other)
  Sender: FDA-Public Use
  Company Number: CIP11002265

PATIENT
  Age: 60 Year
  Sex: Female

DRUGS (49)
  1. ACTONEL [Suspect]
     Indication: OSTEOPOROSIS
     Dosage: 35 MG ONCE WEEKLY, ORAL
     Route: 048
     Dates: start: 20030516, end: 20090801
  2. FOSAMAX [Suspect]
     Indication: PROPHYLAXIS
     Dosage: SEE IMAGE
     Route: 048
     Dates: end: 20090101
  3. FOSAMAX [Suspect]
     Indication: OSTEOPOROSIS
     Dosage: SEE IMAGE
     Route: 048
     Dates: end: 20090101
  4. FOSAMAX [Suspect]
     Indication: OSTEOPOROSIS PROPHYLAXIS
     Dosage: SEE IMAGE
     Route: 048
     Dates: end: 20090101
  5. FOSAMAX [Suspect]
     Indication: OSTEOPENIA
     Dosage: SEE IMAGE
     Route: 048
     Dates: end: 20090101
  6. FOSAMAX [Suspect]
     Indication: PROPHYLAXIS
     Dosage: SEE IMAGE
     Route: 048
     Dates: start: 19950101
  7. FOSAMAX [Suspect]
     Indication: OSTEOPOROSIS
     Dosage: SEE IMAGE
     Route: 048
     Dates: start: 19950101
  8. FOSAMAX [Suspect]
     Indication: OSTEOPOROSIS PROPHYLAXIS
     Dosage: SEE IMAGE
     Route: 048
     Dates: start: 19950101
  9. FOSAMAX [Suspect]
     Indication: OSTEOPENIA
     Dosage: SEE IMAGE
     Route: 048
     Dates: start: 19950101
  10. FOSAMAX [Suspect]
     Indication: PROPHYLAXIS
     Dosage: SEE IMAGE
     Route: 048
     Dates: start: 20000401, end: 20010427
  11. FOSAMAX [Suspect]
     Indication: OSTEOPOROSIS
     Dosage: SEE IMAGE
     Route: 048
     Dates: start: 20000401, end: 20010427
  12. FOSAMAX [Suspect]
     Indication: OSTEOPOROSIS PROPHYLAXIS
     Dosage: SEE IMAGE
     Route: 048
     Dates: start: 20000401, end: 20010427
  13. FOSAMAX [Suspect]
     Indication: OSTEOPENIA
     Dosage: SEE IMAGE
     Route: 048
     Dates: start: 20000401, end: 20010427
  14. FOSAMAX [Suspect]
     Indication: PROPHYLAXIS
     Dosage: SEE IMAGE
     Route: 048
     Dates: start: 20010427, end: 20030516
  15. FOSAMAX [Suspect]
     Indication: OSTEOPOROSIS
     Dosage: SEE IMAGE
     Route: 048
     Dates: start: 20010427, end: 20030516
  16. FOSAMAX [Suspect]
     Indication: OSTEOPOROSIS PROPHYLAXIS
     Dosage: SEE IMAGE
     Route: 048
     Dates: start: 20010427, end: 20030516
  17. FOSAMAX [Suspect]
     Indication: OSTEOPENIA
     Dosage: SEE IMAGE
     Route: 048
     Dates: start: 20010427, end: 20030516
  18. FOSAMAX [Suspect]
     Indication: PROPHYLAXIS
     Dosage: SEE IMAGE
     Route: 048
     Dates: start: 20020401, end: 20021112
  19. FOSAMAX [Suspect]
     Indication: OSTEOPOROSIS
     Dosage: SEE IMAGE
     Route: 048
     Dates: start: 20020401, end: 20021112
  20. FOSAMAX [Suspect]
     Indication: OSTEOPOROSIS PROPHYLAXIS
     Dosage: SEE IMAGE
     Route: 048
     Dates: start: 20020401, end: 20021112
  21. FOSAMAX [Suspect]
     Indication: OSTEOPENIA
     Dosage: SEE IMAGE
     Route: 048
     Dates: start: 20020401, end: 20021112
  22. BLACK COHOSH /01456805/ (CIMICIFUGA RACEMOSA ROOT) [Concomitant]
  23. ZOVIRAX /00587301/ (ACICLOVIR) [Concomitant]
  24. MAGNESIUM (MAGNESIUM) [Concomitant]
  25. BETA CAROTENE (BETACAROTENE) [Concomitant]
  26. GAS-X /06269601/ (SIMETICONE) [Concomitant]
  27. RANITIDINE HYDROCHLORIDE [Concomitant]
  28. CELEBREX [Concomitant]
  29. PROTONIX [Concomitant]
  30. HYDROCODONE BITARTRATE [Concomitant]
  31. VITAMIN C/00008001/ (ASCORBIC ACID) [Concomitant]
  32. VITAMIN B COMPLEX (VITAMIN B COMPLEX) [Concomitant]
  33. VICODIN [Concomitant]
  34. FIBERCON (POLYCARBOPHIL CALCIUM) [Concomitant]
  35. METROGEL-VAGINAL /00012501/ (METRONIDAZOLE) [Concomitant]
  36. SMZ-TMP (SULFAMETHOXAZOLE, TRIMETHOPRIM) [Concomitant]
  37. VITAMIN A /00056001/ (RETINOL) [Concomitant]
  38. GLUCOSAMINE CHONDROITIN /01625901/ (CHONDROITIN SULFATE, GLUCOSAMINE) [Concomitant]
  39. VITAMIN D [Concomitant]
  40. GELATIN (GELATIN) [Concomitant]
  41. SELENIUM (SELENIUM) [Concomitant]
  42. ZINC (ZINC) [Concomitant]
  43. CYCLOBENZAPRINE [Concomitant]
  44. GARLIC /01570501/ (ALLIUM SATIVUM) [Concomitant]
  45. RECLAST [Suspect]
     Dosage: 5 MG ONCE ONLY, INTRAVENOUS
     Route: 042
     Dates: start: 20090828, end: 20090828
  46. AMBIEN [Concomitant]
  47. VITAMIN E /00110501/ (TOCOPHEROL) [Concomitant]
  48. CALCIUM CARBONATE [Concomitant]
  49. GINKO BILOBA (GINKGO BILOBA) [Concomitant]

REACTIONS (17)
  - OSTEOGENESIS IMPERFECTA [None]
  - PAIN IN EXTREMITY [None]
  - WEIGHT BEARING DIFFICULTY [None]
  - CONDITION AGGRAVATED [None]
  - FALL [None]
  - FRACTURE MALUNION [None]
  - LOW TURNOVER OSTEOPATHY [None]
  - BONE DISORDER [None]
  - OSTEOMALACIA [None]
  - OSTEOMYELITIS [None]
  - OSTEOPOROSIS [None]
  - ARTHRALGIA [None]
  - FRACTURE DISPLACEMENT [None]
  - CULTURE POSITIVE [None]
  - FEMUR FRACTURE [None]
  - OEDEMA PERIPHERAL [None]
  - STRESS FRACTURE [None]
